FAERS Safety Report 17271229 (Version 2)
Quarter: 2020Q1

REPORT INFORMATION
  Report Type: Spontaneous
  Country: US (occurrence: US)
  Receive Date: 20200115
  Receipt Date: 20200122
  Transmission Date: 20200409
  Serious: Yes (Hospitalization, Other)
  Sender: FDA-Public Use
  Company Number: US-ADVANZ PHARMA-202001000126

PATIENT

DRUGS (3)
  1. BACLOFEN. [Suspect]
     Active Substance: BACLOFEN
     Dosage: UNK
  2. CLONIDINE. [Suspect]
     Active Substance: CLONIDINE
     Dosage: UNK
  3. LIDOCAINE. [Suspect]
     Active Substance: LIDOCAINE
     Dosage: UNK

REACTIONS (7)
  - Condition aggravated [Recovering/Resolving]
  - Bradycardia [Recovering/Resolving]
  - Toxicity to various agents [Recovering/Resolving]
  - Accidental exposure to product [Recovering/Resolving]
  - Hypertension [Recovering/Resolving]
  - Accidental overdose [Recovering/Resolving]
  - Product label issue [Unknown]
